FAERS Safety Report 4288955-X (Version None)
Quarter: 2004Q1

REPORT INFORMATION
  Report Type: 
  Country: None (occurrence: None)
  Receive Date: 20040206
  Receipt Date: 20040129
  Transmission Date: 20041129
  Serious: Yes (Hospitalization)
  Sender: FDA-Public Use
  Company Number: 2004196724US

PATIENT
  Age: 59 Year
  Sex: Female

DRUGS (3)
  1. ELLENCE [Suspect]
     Indication: BREAST CANCER
     Dosage: 150 MG, CYCLIC Q3 WEEKS
     Dates: start: 20040115
  2. TAXOTERE [Suspect]
     Indication: BREAST CANCER
     Dosage: 150 MG, CYCLIC 3WEEKS
     Dates: start: 20040115
  3. CYCLOPHOSPHAMIDE [Suspect]
     Indication: BREAST CANCER
     Dosage: 1000 MG, CYCLIC Q 3 WEEKS
     Dates: start: 20040115

REACTIONS (4)
  - DIARRHOEA [None]
  - NAUSEA [None]
  - NEUTROPENIA [None]
  - VOMITING [None]
